FAERS Safety Report 17289226 (Version 4)
Quarter: 2020Q1

REPORT INFORMATION
  Report Type: Report from Study
  Country: US (occurrence: US)
  Receive Date: 20200120
  Receipt Date: 20200204
  Transmission Date: 20200409
  Serious: Yes (Hospitalization)
  Sender: FDA-Public Use
  Company Number: US-EISAI MEDICAL RESEARCH-EC-2020-068500

PATIENT
  Age: 75 Year
  Sex: Female
  Weight: 60 kg

DRUGS (16)
  1. COLACE [Concomitant]
     Active Substance: DOCUSATE SODIUM
     Dates: start: 20150101
  2. LENVATINIB [Suspect]
     Active Substance: LENVATINIB
     Indication: OVARIAN CANCER
     Route: 048
     Dates: start: 20191007, end: 20191212
  3. PEMBROLIZUMAB. [Suspect]
     Active Substance: PEMBROLIZUMAB
     Route: 041
     Dates: start: 20191119, end: 20191119
  4. LIDOCAINE. [Concomitant]
     Active Substance: LIDOCAINE
     Dates: start: 20190920
  5. PROCHLORPERAZINE MALEATE. [Concomitant]
     Active Substance: PROCHLORPERAZINE MALEATE
     Dates: start: 20150910
  6. COZAAR [Concomitant]
     Active Substance: LOSARTAN POTASSIUM
     Dates: start: 20191028
  7. MIRALAX [Concomitant]
     Active Substance: POLYETHYLENE GLYCOL 3350
     Dates: start: 20150101
  8. PEMBROLIZUMAB. [Suspect]
     Active Substance: PEMBROLIZUMAB
     Indication: OVARIAN CANCER
     Route: 041
     Dates: start: 20191007, end: 20191029
  9. AMLODIPINE BESYLATE. [Concomitant]
     Active Substance: AMLODIPINE BESYLATE
     Dates: start: 20191022
  10. BREO ELLIPTA [Concomitant]
     Active Substance: FLUTICASONE FUROATE\VILANTEROL TRIFENATATE
     Dates: start: 20160101
  11. TRAMADOL HYDROCHLORIDE. [Concomitant]
     Active Substance: TRAMADOL HYDROCHLORIDE
     Dates: start: 20191210
  12. CORRECTOL NOS [Concomitant]
     Active Substance: BISACODYL OR DOCUSATE SODIUM
     Dates: start: 201901
  13. CRESTOR [Concomitant]
     Active Substance: ROSUVASTATIN CALCIUM
     Dates: start: 20170101
  14. FLEXERIL [Concomitant]
     Active Substance: CYCLOBENZAPRINE HYDROCHLORIDE
     Dates: start: 20191210
  15. MAGNESIUM [Concomitant]
     Active Substance: MAGNESIUM
     Dates: start: 20150101
  16. VITAMINS [Concomitant]
     Active Substance: VITAMINS
     Dates: start: 19900101

REACTIONS (5)
  - Cholecystitis [Recovering/Resolving]
  - Diarrhoea [Recovered/Resolved]
  - Small intestinal obstruction [Not Recovered/Not Resolved]
  - Vomiting [Recovered/Resolved]
  - Bile duct stone [Recovered/Resolved]

NARRATIVE: CASE EVENT DATE: 20200106
